FAERS Safety Report 5061950-9 (Version None)
Quarter: 2006Q3

REPORT INFORMATION
  Report Type: 
  Country: None (occurrence: None)
  Receive Date: 20060721
  Receipt Date: 20060707
  Transmission Date: 20061208
  Serious: Yes (Hospitalization)
  Sender: FDA-Public Use
  Company Number: US017890

PATIENT
  Age: 8 Year
  Sex: Male
  Weight: 39.4629 kg

DRUGS (4)
  1. MODAFINIL [Suspect]
     Indication: ATTENTION DEFICIT/HYPERACTIVITY DISORDER
     Dosage: 425 MG QD ORAL
     Route: 048
     Dates: start: 20051202
  2. CHILDRENS CHEWABLE VITAMINS [Concomitant]
  3. ALBUTEROL SPIROS [Concomitant]
  4. DIMETAPP [Concomitant]

REACTIONS (4)
  - ABNORMAL BEHAVIOUR [None]
  - AGGRESSION [None]
  - SELF INJURIOUS BEHAVIOUR [None]
  - THEFT [None]
